FAERS Safety Report 10238394 (Version 1)
Quarter: 2014Q2

REPORT INFORMATION
  Report Type: Spontaneous
  Country: ZA (occurrence: ZA)
  Receive Date: 20140616
  Receipt Date: 20140616
  Transmission Date: 20141212
  Serious: Yes (Other)
  Sender: FDA-Public Use
  Company Number: ZA-BAYER-2014-085533

PATIENT
  Age: 69 Year
  Sex: Male

DRUGS (1)
  1. NEXAVAR 200 [Suspect]
     Indication: RENAL CELL CARCINOMA
     Dosage: 2X400
     Route: 048
     Dates: start: 201006, end: 201405

REACTIONS (1)
  - Renal cell carcinoma [None]
